FAERS Safety Report 5814523-1 (Version None)
Quarter: 2008Q3

REPORT INFORMATION
  Report Type: 
  Country: None (occurrence: None)
  Receive Date: 20080718
  Receipt Date: 20070525
  Transmission Date: 20090109
  Serious: No
  Sender: FDA-Public Use
  Company Number: US-KINGPHARMUSA00001-K200700646

PATIENT

DRUGS (1)
  1. LEVOXYL [Suspect]
     Dosage: 125 MCG, UNK
     Dates: end: 20070525

REACTIONS (5)
  - ARTHRALGIA [None]
  - DIZZINESS [None]
  - FATIGUE [None]
  - HEART RATE INCREASED [None]
  - NERVOUSNESS [None]
